FAERS Safety Report 6519447-2 (Version None)
Quarter: 2009Q4

REPORT INFORMATION
  Report Type: 
  Country: None (occurrence: None)
  Receive Date: 20091228
  Receipt Date: 20091222
  Transmission Date: 20100525
  Serious: Yes (Other)
  Sender: FDA-Public Use
  Company Number: DE-SANOFI-AVENTIS-2009SA010531

PATIENT
  Age: 73 Year
  Sex: Female
  Weight: 65 kg

DRUGS (3)
  1. RILUTEK [Suspect]
     Indication: AMYOTROPHIC LATERAL SCLEROSIS
     Route: 048
     Dates: start: 20090901, end: 20091202
  2. AMITRIPTYLINE HYDROCHLORIDE/CHLORDIAZEPOXIDE HYDROCHLORIDE [Concomitant]
     Indication: DEPRESSION
     Route: 048
     Dates: start: 19730101, end: 20070101
  3. AMITRIPTYLINE HYDROCHLORIDE/CHLORDIAZEPOXIDE HYDROCHLORIDE [Concomitant]
     Route: 048
     Dates: start: 20070101

REACTIONS (3)
  - AGRANULOCYTOSIS [None]
  - ANAEMIA [None]
  - WHITE BLOOD CELL COUNT DECREASED [None]
